FAERS Safety Report 9851998 (Version 1)
Quarter: 2014Q1

REPORT INFORMATION
  Report Type: Spontaneous
  Country: US (occurrence: US)
  Receive Date: 20140129
  Receipt Date: 20140129
  Transmission Date: 20141002
  Serious: No
  Sender: FDA-Public Use
  Company Number: US-VIIV HEALTHCARE LIMITED-A1034392A

PATIENT
  Sex: Male

DRUGS (1)
  1. LAMIVUDINE-HIV [Suspect]
     Indication: HIV INFECTION
     Route: 048

REACTIONS (1)
  - Drug ineffective [Unknown]
